FAERS Safety Report 19354991 (Version 1)
Quarter: 2021Q2

REPORT INFORMATION
  Report Type: Spontaneous
  Country: CN (occurrence: CN)
  Receive Date: 20210602
  Receipt Date: 20210602
  Transmission Date: 20210717
  Serious: Yes (Other)
  Sender: FDA-Public Use
  Company Number: CN-ROCHE-2836251

PATIENT
  Age: 52 Year
  Sex: Female

DRUGS (11)
  1. HERCEPTIN [Suspect]
     Active Substance: TRASTUZUMAB
     Dosage: TCBH: THE FOLLOWED DOSE
     Route: 065
     Dates: start: 20200225
  2. DOCETAXEL. [Concomitant]
     Active Substance: DOCETAXEL
  3. CYCLOPHOSPHAMIDE. [Concomitant]
     Active Substance: CYCLOPHOSPHAMIDE
  4. HERCEPTIN [Suspect]
     Active Substance: TRASTUZUMAB
     Dosage: TCBPH
     Route: 065
     Dates: start: 20200319
  5. HERCEPTIN [Suspect]
     Active Substance: TRASTUZUMAB
     Dosage: TCBPH: 09/APR/2020, 30/APR/2020, 21/MAY/2020
     Route: 065
  6. PERJETA [Suspect]
     Active Substance: PERTUZUMAB
     Indication: BREAST CANCER
     Dosage: TCBPH
     Route: 065
     Dates: start: 20200319
  7. PERJETA [Suspect]
     Active Substance: PERTUZUMAB
     Dosage: TCBPH: 09/APR/2020, 30/APR/2020, 21/MAY/2020
     Route: 065
  8. CARBOPLATIN. [Concomitant]
     Active Substance: CARBOPLATIN
  9. LETROZOLE. [Concomitant]
     Active Substance: LETROZOLE
  10. HERCEPTIN [Suspect]
     Active Substance: TRASTUZUMAB
     Indication: BREAST CANCER
     Dosage: TCBH: THE FIRST DOSE
     Route: 065
     Dates: start: 20200204
  11. KADCYLA [Concomitant]
     Active Substance: ADO-TRASTUZUMAB EMTANSINE

REACTIONS (1)
  - Myelosuppression [Unknown]
